FAERS Safety Report 4407459-4 (Version None)
Quarter: 2004Q3

REPORT INFORMATION
  Report Type: 
  Country: None (occurrence: None)
  Receive Date: 20040721
  Receipt Date: 20040706
  Transmission Date: 20050211
  Serious: Yes (Hospitalization)
  Sender: FDA-Public Use
  Company Number: DE_040513525

PATIENT
  Age: 52 Year
  Sex: Female

DRUGS (10)
  1. GEMZAR [Suspect]
     Indication: OVARIAN CANCER
     Dosage: 1000 MG/M2
     Dates: start: 20040401, end: 20040608
  2. OXALIPLATIN [Concomitant]
  3. VOLTAREN [Concomitant]
  4. NOVALDIN INJ [Concomitant]
  5. NEXIUM [Concomitant]
  6. RAMIPRIL [Concomitant]
  7. CARMEN (LERCANIDIPINE) [Concomitant]
  8. METOPROLOL SUCCINATE [Concomitant]
  9. MOTILIUM (DOMPERIDONE MALEATE) [Concomitant]
  10. EUNERPAN (MELPERONE HYDROCHLORIDE) [Concomitant]

REACTIONS (20)
  - BLOOD CREATININE ABNORMAL [None]
  - BLOOD GLUCOSE ABNORMAL [None]
  - C-REACTIVE PROTEIN INCREASED [None]
  - COMA [None]
  - CRYING [None]
  - DIARRHOEA [None]
  - DIZZINESS [None]
  - ENCEPHALOPATHY [None]
  - FATIGUE [None]
  - HAEMOGLOBIN ABNORMAL [None]
  - HEADACHE [None]
  - HYPERTENSION [None]
  - HYPOKINESIA [None]
  - INFUSION RELATED REACTION [None]
  - MENINGITIS [None]
  - MYOGLOBIN BLOOD INCREASED [None]
  - NAUSEA [None]
  - PROTEIN TOTAL INCREASED [None]
  - TRANSAMINASES ABNORMAL [None]
  - WHITE BLOOD CELL COUNT ABNORMAL [None]
